FAERS Safety Report 7734898-6 (Version None)
Quarter: 2011Q3

REPORT INFORMATION
  Report Type: 
  Country: None (occurrence: None)
  Receive Date: 20110907
  Receipt Date: 20110824
  Transmission Date: 20111222
  Serious: Yes (Hospitalization, Other)
  Sender: FDA-Public Use
  Company Number: PHHY2011JP75943

PATIENT
  Age: 68 Year
  Sex: Female

DRUGS (2)
  1. H2-RECEPTOR ANTAGONISTS [Concomitant]
  2. DIOVAN [Suspect]
     Dosage: 40 MG, QD
     Route: 048

REACTIONS (2)
  - INFECTION [None]
  - LARYNGEAL OEDEMA [None]
